FAERS Safety Report 5865141-0 (Version None)
Quarter: 2008Q3

REPORT INFORMATION
  Report Type: 
  Country: None (occurrence: None)
  Receive Date: 20080829
  Receipt Date: 20080825
  Transmission Date: 20090109
  Serious: Yes (Death, Hospitalization)
  Sender: FDA-Public Use
  Company Number: A0745027A

PATIENT
  Age: 64 Year
  Sex: Female
  Weight: 61 kg

DRUGS (1)
  1. SERETIDE [Suspect]
     Dosage: 3PUFF PER DAY
     Dates: start: 20071101, end: 20080213

REACTIONS (1)
  - CEREBROVASCULAR ACCIDENT [None]
